FAERS Safety Report 8417446-7 (Version None)
Quarter: 2012Q2

REPORT INFORMATION
  Report Type: 
  Country: None (occurrence: None)
  Receive Date: 20120606
  Receipt Date: 20120530
  Transmission Date: 20120825
  Serious: Yes (Other)
  Sender: FDA-Public Use
  Company Number: PHHY2012GB046115

PATIENT
  Age: 87 Year
  Sex: Female

DRUGS (4)
  1. SIMVASTATIN [Concomitant]
     Dosage: 20 MG, QD
     Route: 048
     Dates: start: 20060101
  2. ASPIRIN [Concomitant]
     Dosage: 75 MG, QD
     Route: 048
     Dates: start: 20060101
  3. INDAPAMIDE [Suspect]
     Dosage: 1.5 MG, QD
     Route: 048
     Dates: start: 20120428, end: 20120505
  4. BENDROFLUMETHIAZIDE [Concomitant]
     Route: 048
     Dates: start: 20060101, end: 20120427

REACTIONS (2)
  - PAIN IN EXTREMITY [None]
  - MICTURITION DISORDER [None]
